FAERS Safety Report 6937240-3 (Version None)
Quarter: 2010Q3

REPORT INFORMATION
  Report Type: 
  Country: None (occurrence: None)
  Receive Date: 20100823
  Receipt Date: 20100814
  Transmission Date: 20110219
  Serious: Yes (Hospitalization)
  Sender: FDA-Public Use
  Company Number: A0876893A

PATIENT
  Sex: Male
  Weight: 12 kg

DRUGS (1)
  1. AMOXIL [Suspect]
     Indication: PRODUCT USED FOR UNKNOWN INDICATION
     Dosage: 4.5ML TWICE PER DAY
     Route: 048

REACTIONS (4)
  - AGITATION [None]
  - ERYTHEMA [None]
  - EYE DISCHARGE [None]
  - PURULENT DISCHARGE [None]
